FAERS Safety Report 4756646-4 (Version None)
Quarter: 2005Q3

REPORT INFORMATION
  Report Type: 
  Country: None (occurrence: None)
  Receive Date: 20050830
  Receipt Date: 20050801
  Transmission Date: 20060218
  Serious: Yes (Life-Threatening, Hospitalization, Other)
  Sender: FDA-Public Use
  Company Number: US-GLAXOSMITHKLINE-A0568480A

PATIENT
  Age: 24 Year
  Sex: Male
  Weight: 78.6 kg

DRUGS (2)
  1. ADVAIR DISKUS 100/50 [Suspect]
     Indication: ASTHMA
     Dosage: 1PUFF TWICE PER DAY
     Route: 065
     Dates: start: 20041001
  2. ALBUTEROL [Concomitant]

REACTIONS (2)
  - PLEURITIC PAIN [None]
  - PNEUMOTHORAX [None]
